FAERS Safety Report 5722188-2 (Version None)
Quarter: 2008Q2

REPORT INFORMATION
  Report Type: 
  Country: None (occurrence: None)
  Receive Date: 20080429
  Receipt Date: 20080417
  Transmission Date: 20081010
  Serious: Yes (Other)
  Sender: FDA-Public Use
  Company Number: CH-ELI_LILLY_AND_COMPANY-CH200804004443

PATIENT
  Age: 59 Year
  Sex: Female

DRUGS (5)
  1. FLUCTINE [Suspect]
     Indication: CONDUCT DISORDER
     Dosage: 20 MG, DAILY (1/D)
     Route: 048
     Dates: start: 20071102, end: 20080128
  2. RISPERDAL [Interacting]
     Indication: DEPRESSION
     Dosage: 1 MG, DAILY (1/D)
     Route: 048
     Dates: start: 20071009, end: 20080122
  3. NEXIUM [Concomitant]
     Indication: GASTROOESOPHAGEAL REFLUX DISEASE
     Dosage: 20 MG, DAILY (1/D)
     Route: 048
     Dates: start: 20070808
  4. ASPIRIN [Concomitant]
     Indication: VASCULAR DEMENTIA
     Dosage: 100 MG, DAILY (1/D)
     Route: 048
     Dates: start: 20060225
  5. FOSAMAX [Concomitant]
     Indication: OSTEOPOROSIS
     Dosage: 70 MG, WEEKLY (1/W)
     Route: 048
     Dates: start: 20051101

REACTIONS (2)
  - AKATHISIA [None]
  - DRUG INTERACTION [None]
